FAERS Safety Report 4376076-7 (Version None)
Quarter: 2004Q2

REPORT INFORMATION
  Report Type: 
  Country: None (occurrence: None)
  Receive Date: 20040611
  Receipt Date: 20030411
  Transmission Date: 20050107
  Serious: Yes (Other)
  Sender: FDA-Public Use
  Company Number: US-BRISTOL-MYERS SQUIBB COMPANY-12240305

PATIENT
  Age: 58 Year
  Sex: Male

DRUGS (3)
  1. CETUXIMAB [Suspect]
     Indication: COLORECTAL CANCER
     Dosage: THERAPY INITIATED ON 26-NOV-2002
     Route: 042
     Dates: start: 20021101, end: 20030121
  2. OXYCONTIN [Concomitant]
  3. VIOXX [Concomitant]

REACTIONS (5)
  - COLORECTAL CANCER METASTATIC [None]
  - DIFFUSE ALVEOLAR DAMAGE [None]
  - NON-CARDIOGENIC PULMONARY OEDEMA [None]
  - PNEUMONITIS [None]
  - RESPIRATORY FAILURE [None]
